FAERS Safety Report 4566533-2 (Version None)
Quarter: 2005Q1

REPORT INFORMATION
  Report Type: 
  Country: None (occurrence: None)
  Receive Date: 20050126
  Receipt Date: 20050126
  Transmission Date: 20050727
  Serious: Yes (Hospitalization)
  Sender: FDA-Public Use
  Company Number: None

PATIENT
  Age: 76 Year
  Sex: Male
  Weight: 57.6068 kg

DRUGS (4)
  1. TERAZOSIN 5MG QHS RENEWED 6/1/04-10/24/04 [Suspect]
     Indication: BENIGN PROSTATIC HYPERPLASIA
     Dosage: 5MG QHS
     Dates: start: 20040601, end: 20041024
  2. DILTIAZEM [Suspect]
     Indication: ATRIAL FIBRILLATION
     Dates: start: 20040920, end: 20041024
  3. FUROSEMIDE [Suspect]
     Indication: CARDIAC FAILURE CONGESTIVE
     Dosage: INCREASED 40MG DAILY
     Dates: start: 20040709, end: 20040920
  4. FUROSEMIDE [Suspect]
     Dosage: INCREASED 40 ALT W/ 80
     Dates: start: 20040920, end: 20041002

REACTIONS (2)
  - FALL [None]
  - ORTHOSTATIC HYPOTENSION [None]
